FAERS Safety Report 12914653 (Version 2)
Quarter: 2017Q1

REPORT INFORMATION
  Report Type: Spontaneous
  Country: US (occurrence: US)
  Receive Date: 20161106
  Receipt Date: 20170216
  Transmission Date: 20170428
  Serious: No
  Sender: FDA-Public Use
  Company Number: US-RELYPSA-RLY2016001742

PATIENT
  Sex: Male

DRUGS (15)
  1. FERROUS GLUCONATE [Concomitant]
     Active Substance: FERROUS GLUCONATE
  2. MAGNESIUM OXIDE. [Concomitant]
     Active Substance: MAGNESIUM OXIDE
  3. PANTOPRAZOLE SODIUM. [Concomitant]
     Active Substance: PANTOPRAZOLE SODIUM
  4. VELTASSA [Suspect]
     Active Substance: PATIROMER
     Dosage: 8.4 G, QOD
     Route: 048
     Dates: start: 2016
  5. ASCORBIC ACID. [Concomitant]
     Active Substance: ASCORBIC ACID
  6. SYSTANE CONTACTS [Concomitant]
     Active Substance: DEXTRAN\HYPROMELLOSES
  7. FOLIC ACID. [Concomitant]
     Active Substance: FOLIC ACID
  8. PREDNISONE. [Concomitant]
     Active Substance: PREDNISONE
  9. VENTOLIN HFA [Concomitant]
     Active Substance: ALBUTEROL SULFATE
  10. CALCITROL [Concomitant]
     Active Substance: CALCITRIOL
  11. CALCIUM D3 [Concomitant]
     Active Substance: CALCIUM\CHOLECALCIFEROL
  12. SIMVASTATIN. [Concomitant]
     Active Substance: SIMVASTATIN
  13. IRON [Concomitant]
     Active Substance: IRON
  14. VELTASSA [Suspect]
     Active Substance: PATIROMER
     Indication: HYPERKALAEMIA
     Dosage: 8.4 G, QD
     Route: 048
     Dates: start: 20160804, end: 2016
  15. DILTIAZEM HCL EXTE-REL [Concomitant]
     Active Substance: DILTIAZEM HYDROCHLORIDE

REACTIONS (5)
  - Diarrhoea [Unknown]
  - Fatigue [Unknown]
  - Inappropriate schedule of drug administration [Not Recovered/Not Resolved]
  - Constipation [Unknown]
  - Back pain [Unknown]

NARRATIVE: CASE EVENT DATE: 2016
